FAERS Safety Report 10243006 (Version 2)
Quarter: 2014Q2

REPORT INFORMATION
  Report Type: Report from Study
  Country: CA (occurrence: CA)
  Receive Date: 20140618
  Receipt Date: 20140618
  Transmission Date: 20141212
  Serious: Yes (Other)
  Sender: FDA-Public Use
  Company Number: CA-BRISTOL-MYERS SQUIBB COMPANY-20620209

PATIENT
  Age: 71 Year
  Sex: Female

DRUGS (11)
  1. ORENCIA [Suspect]
     Indication: RHEUMATOID ARTHRITIS
     Dosage: 1DF: 750UNITS NOS
     Dates: start: 20130416
  2. VITAMIN D [Concomitant]
  3. CALTRATE [Concomitant]
  4. OXYCOCET [Concomitant]
  5. FOLIC ACID [Concomitant]
  6. AMITRIPTYLINE [Concomitant]
  7. PARIET [Concomitant]
  8. HYDROMORPH CONTIN [Concomitant]
  9. PLAQUENIL [Concomitant]
  10. GABAPENTIN [Concomitant]
  11. CLONIDINE [Concomitant]

REACTIONS (2)
  - Localised infection [Unknown]
  - Foot fracture [Not Recovered/Not Resolved]
